FAERS Safety Report 11349660 (Version 3)
Quarter: 2016Q1

REPORT INFORMATION
  Report Type: Spontaneous
  Country: DE (occurrence: DE)
  Receive Date: 20150807
  Receipt Date: 20160216
  Transmission Date: 20160525
  Serious: Yes (Other)
  Sender: FDA-Public Use
  Company Number: DE-ROCHE-1617654

PATIENT
  Age: 67 Year
  Sex: Female
  Weight: 76 kg

DRUGS (10)
  1. VIGANTOLETTEN [Concomitant]
     Active Substance: CHOLECALCIFEROL
     Indication: VITAMIN D DEFICIENCY
  2. D3-VICOTRAT [Concomitant]
     Indication: VITAMIN D DEFICIENCY
  3. FORSTEO [Suspect]
     Active Substance: TERIPARATIDE
     Indication: OSTEOPOROSIS
     Route: 058
     Dates: start: 20130201, end: 20130530
  4. FORSTEO [Suspect]
     Active Substance: TERIPARATIDE
     Route: 058
     Dates: start: 20140321, end: 20140606
  5. BONVIVA [Suspect]
     Active Substance: IBANDRONATE SODIUM
     Indication: OSTEOPOROSIS
     Route: 042
     Dates: start: 20120309, end: 20121212
  6. PANTOPRAZOL [Concomitant]
     Active Substance: PANTOPRAZOLE SODIUM
     Indication: PROPHYLAXIS
     Route: 048
  7. PROLIA [Suspect]
     Active Substance: DENOSUMAB
     Indication: OSTEOPOROSIS
     Dosage: 60MG
     Route: 058
     Dates: start: 20140725, end: 20150123
  8. ASPIRIN. [Concomitant]
     Active Substance: ASPIRIN
     Route: 065
  9. D3-VICOTRAT [Concomitant]
     Indication: OSTEOPOROSIS
     Route: 030
     Dates: start: 20101209, end: 20120614
  10. VIGANTOLETTEN [Concomitant]
     Active Substance: CHOLECALCIFEROL
     Indication: OSTEOPOROSIS
     Route: 065
     Dates: start: 20130322, end: 20151008

REACTIONS (9)
  - Limb discomfort [Not Recovered/Not Resolved]
  - Weight increased [Not Recovered/Not Resolved]
  - Arthralgia [Not Recovered/Not Resolved]
  - Bladder discomfort [Unknown]
  - Panniculitis [Unknown]
  - Oedema [Unknown]
  - Joint stiffness [Not Recovered/Not Resolved]
  - Thoracic vertebral fracture [Recovered/Resolved with Sequelae]
  - Vertebroplasty [Unknown]

NARRATIVE: CASE EVENT DATE: 20120614
